FAERS Safety Report 17330128 (Version 1)
Quarter: 2020Q1

REPORT INFORMATION
  Report Type: Spontaneous
  Country: US (occurrence: US)
  Receive Date: 20200128
  Receipt Date: 20200128
  Transmission Date: 20200409
  Serious: No
  Sender: FDA-Public Use
  Company Number: US-SA-2020SA020633

PATIENT
  Age: 61 Year
  Sex: Male

DRUGS (1)
  1. ALLEGRA [Suspect]
     Active Substance: FEXOFENADINE HYDROCHLORIDE
     Dosage: UNK UNK, QD, FRIDAY, SATURDAY AND SUNDAY AT 9 PM
     Route: 065

REACTIONS (2)
  - Reaction to excipient [Unknown]
  - Fall [Unknown]
